FAERS Safety Report 15956418 (Version 1)
Quarter: 2019Q1

REPORT INFORMATION
  Report Type: Spontaneous
  Country: US (occurrence: US)
  Receive Date: 20190213
  Receipt Date: 20190213
  Transmission Date: 20190417
  Serious: Yes (Disabling)
  Sender: FDA-Public Use
  Company Number: None

PATIENT
  Age: 44 Year
  Sex: Female
  Weight: 64.41 kg

DRUGS (1)
  1. MIRENA [Suspect]
     Active Substance: LEVONORGESTREL

REACTIONS (6)
  - Cervical polyp [None]
  - Dyspareunia [None]
  - Menorrhagia [None]
  - Vaginal infection [None]
  - Anaemia [None]
  - Uterine leiomyoma [None]

NARRATIVE: CASE EVENT DATE: 20170810
